FAERS Safety Report 7985609-0 (Version None)
Quarter: 2011Q4

REPORT INFORMATION
  Report Type: 
  Country: None (occurrence: None)
  Receive Date: 20111216
  Receipt Date: 20111206
  Transmission Date: 20120403
  Serious: Yes (Other)
  Sender: FDA-Public Use
  Company Number: US-JNJFOC-20111100220

PATIENT
  Sex: Male
  Weight: 90.27 kg

DRUGS (4)
  1. REMICADE [Suspect]
     Indication: RHEUMATOID ARTHRITIS
     Route: 042
     Dates: start: 20110326
  2. IBUPROFEN [Concomitant]
  3. REMICADE [Suspect]
     Route: 042
     Dates: start: 20110730
  4. REMICADE [Suspect]
     Route: 042
     Dates: start: 20110423

REACTIONS (4)
  - DYSPNOEA [None]
  - CHEST PAIN [None]
  - VOMITING [None]
  - PALLOR [None]
